FAERS Safety Report 25476401 (Version 2)
Quarter: 2025Q3

REPORT INFORMATION
  Report Type: Spontaneous
  Country: US (occurrence: US)
  Receive Date: 20250625
  Receipt Date: 20250716
  Transmission Date: 20251021
  Serious: Yes (Other)
  Sender: SCA PHARMACEUTICALS, LITTLE ROCK, AR
  Company Number: US-SCA PHARMACEUTICALS-2025SCA00021

PATIENT
  Age: 78 Year
  Sex: Male
  Weight: 153.97 kg

DRUGS (7)
  1. ROCURONIUM BROMIDE [Suspect]
     Active Substance: ROCURONIUM BROMIDE
     Indication: Endotracheal intubation
     Route: 065
     Dates: start: 20250604, end: 20250604
  2. ROCURONIUM BROMIDE [Suspect]
     Active Substance: ROCURONIUM BROMIDE
     Route: 065
     Dates: start: 20250604, end: 20250604
  3. METOPROLOL [Concomitant]
     Active Substance: METOPROLOL
     Route: 048
  4. CEPHRADINE [Concomitant]
     Active Substance: CEPHRADINE
     Route: 042
  5. METRONIDAZOLE [Concomitant]
     Active Substance: METRONIDAZOLE
  6. LIDOCAINE [Concomitant]
     Active Substance: LIDOCAINE
     Route: 042
  7. PROPOFOL [Concomitant]
     Active Substance: PROPOFOL
     Route: 042

REACTIONS (3)
  - Bronchospasm [Recovered/Resolved]
  - Hypotension [Recovered/Resolved]
  - Hypoxia [Recovered/Resolved]

NARRATIVE: CASE EVENT DATE: 20250604
